FAERS Safety Report 14678762 (Version 1)
Quarter: 2018Q1

REPORT INFORMATION
  Report Type: Spontaneous
  Country: FR (occurrence: FR)
  Receive Date: 20180326
  Receipt Date: 20180326
  Transmission Date: 20180509
  Serious: Yes (Hospitalization, Other)
  Sender: FDA-Public Use
  Company Number: FR-ABBVIE-12P-056-1027108-00

PATIENT
  Age: 44 Year
  Sex: Male
  Weight: 64 kg

DRUGS (19)
  1. NORVIR [Suspect]
     Active Substance: RITONAVIR
     Indication: HIV INFECTION
     Dosage: 100 MG, QD
     Route: 048
     Dates: start: 20120705, end: 20120709
  2. TRUVADA [Suspect]
     Active Substance: EMTRICITABINE\TENOFOVIR DISOPROXIL FUMARATE
     Dosage: 2 DF, QD
     Route: 048
     Dates: start: 20120713, end: 20120717
  3. MALOCIDE [Suspect]
     Active Substance: PYRIMETHAMINE
     Indication: PROPHYLAXIS
  4. TRUVADA [Suspect]
     Active Substance: EMTRICITABINE\TENOFOVIR DISOPROXIL FUMARATE
     Indication: HIV INFECTION
     Dosage: 200MG/245MG
     Route: 048
     Dates: start: 20120705, end: 20120710
  5. CELSENTRI [Suspect]
     Active Substance: MARAVIROC
     Indication: PROPHYLAXIS
     Route: 065
     Dates: start: 20120713, end: 20120717
  6. ZELITREX [Concomitant]
     Active Substance: VALACYCLOVIR HYDROCHLORIDE
     Indication: APHTHOUS ULCER
     Route: 065
     Dates: start: 20120721
  7. NORVIR [Suspect]
     Active Substance: RITONAVIR
     Route: 048
     Dates: start: 20130730
  8. PENTACARINAT [Suspect]
     Active Substance: PENTAMIDINE ISETHIONATE
     Indication: PRODUCT USED FOR UNKNOWN INDICATION
     Route: 065
     Dates: start: 20120623, end: 20120717
  9. PENTASA [Concomitant]
     Active Substance: MESALAMINE
     Indication: COLITIS ULCERATIVE
     Dosage: MORNING AND IN THE EVENING, 2 G, BID
     Route: 065
  10. CELSENTRI [Suspect]
     Active Substance: MARAVIROC
     Indication: HIV INFECTION
     Dosage: MORNING, 150 UNK, BID
     Route: 065
     Dates: start: 20120705, end: 20120707
  11. LEDERFOLINE [Suspect]
     Active Substance: LEUCOVORIN CALCIUM
     Indication: PRODUCT USED FOR UNKNOWN INDICATION
     Route: 065
     Dates: start: 20120705
  12. IMODIUM [Concomitant]
     Active Substance: LOPERAMIDE HYDROCHLORIDE
     Indication: PRODUCT USED FOR UNKNOWN INDICATION
     Route: 065
  13. MALOCIDE [Suspect]
     Active Substance: PYRIMETHAMINE
     Indication: TOXOPLASMOSIS PROPHYLAXIS
     Route: 065
     Dates: start: 20120705, end: 20120717
  14. PENTASA [Concomitant]
     Active Substance: MESALAMINE
     Indication: COLITIS
  15. REYATAZ [Suspect]
     Active Substance: ATAZANAVIR SULFATE
     Indication: HIV INFECTION
     Dosage: 300 MG, QD
     Route: 065
     Dates: start: 20120705, end: 20120709
  16. ISENTRESS [Suspect]
     Active Substance: RALTEGRAVIR POTASSIUM
     Indication: HIV INFECTION
     Dosage: 400 MG, BID
     Route: 065
     Dates: start: 20120713, end: 20120717
  17. FUNGIZONE [Concomitant]
     Active Substance: AMPHOTERICIN B
     Indication: APHTHOUS ULCER
     Route: 065
     Dates: start: 20120721
  18. METRONIDAZOLE. [Concomitant]
     Active Substance: METRONIDAZOLE
     Indication: GIARDIASIS
     Route: 065
  19. PRIMPERAN [Concomitant]
     Active Substance: METOCLOPRAMIDE HYDROCHLORIDE
     Indication: PRODUCT USED FOR UNKNOWN INDICATION
     Dosage: UNK, PRN
     Dates: start: 20120711, end: 20120713

REACTIONS (29)
  - Nausea [Recovered/Resolved]
  - Blood pressure decreased [Unknown]
  - Pyrexia [Unknown]
  - Decreased appetite [Recovering/Resolving]
  - Prurigo [Recovering/Resolving]
  - Rash [Recovering/Resolving]
  - Macule [Unknown]
  - Cough [Unknown]
  - Toxic skin eruption [Unknown]
  - Pancytopenia [Recovering/Resolving]
  - Hyperbilirubinaemia [Unknown]
  - Skin exfoliation [Unknown]
  - Dermatitis exfoliative generalised [Unknown]
  - Jaundice [Recovered/Resolved]
  - Aphthous ulcer [Unknown]
  - Rash generalised [Recovering/Resolving]
  - Diarrhoea [Recovered/Resolved]
  - Genital lesion [Unknown]
  - Seborrhoeic dermatitis [Unknown]
  - Fatigue [Unknown]
  - Hyponatraemia [Unknown]
  - Enanthema [Recovering/Resolving]
  - Epidermal necrosis [Unknown]
  - Pruritus [Recovering/Resolving]
  - Vitamin B12 deficiency [Unknown]
  - Giardiasis [Unknown]
  - Tachycardia [Unknown]
  - Asthenia [Recovering/Resolving]
  - Gastrointestinal disorder [Recovering/Resolving]

NARRATIVE: CASE EVENT DATE: 20120707
